FAERS Safety Report 5940578-X (Version None)
Quarter: 2008Q4

REPORT INFORMATION
  Report Type: 
  Country: None (occurrence: None)
  Receive Date: 20081104
  Receipt Date: 20081027
  Transmission Date: 20090506
  Serious: Yes (Hospitalization)
  Sender: FDA-Public Use
  Company Number: FR-ROCHE-593692

PATIENT
  Sex: Male

DRUGS (8)
  1. FLUMAZENIL [Suspect]
     Indication: DRUG USE FOR UNKNOWN INDICATION
     Dosage: DOSE REPORTED: 1 AT TOTAL. DOSAGE FORM REPORTED: INJECTABLE SOLUTION.
     Route: 042
     Dates: start: 20080830, end: 20080830
  2. ATROPINE [Suspect]
     Indication: DRUG USE FOR UNKNOWN INDICATION
     Dosage: DOSE REPORTED: 1 AT TOTAL. DOSAGE FORM REPORTED: INJECTABLE SOLUTION.
     Route: 042
     Dates: start: 20080830, end: 20080830
  3. NIMBEX [Suspect]
     Indication: DRUG USE FOR UNKNOWN INDICATION
     Dosage: DOSE REPORTED: 1 AT TOTAL. DOSAGE FORM REPORTED: INJECTABLE SOLUTION.
     Route: 042
     Dates: start: 20080830, end: 20080830
  4. CELOCURINE [Suspect]
     Indication: DRUG USE FOR UNKNOWN INDICATION
     Dosage: DOSE REPORTED: 1 AT TOTAL. DOSAGE FORM REPORTED: INJECTABLE SOLUTION.
     Route: 042
     Dates: start: 20080830, end: 20080830
  5. AUGMENTIN '125' [Suspect]
     Indication: DRUG USE FOR UNKNOWN INDICATION
     Dosage: DOSE REPORTED: 1 AT TOTAL. DOSAGE FORM REPORTED: INJECTABLE SOLUTION.
     Route: 042
     Dates: start: 20080830, end: 20080830
  6. HYPNOVEL [Concomitant]
     Indication: DRUG USE FOR UNKNOWN INDICATION
     Dosage: DOSE REPORTED AS: UNKNOWN.
     Route: 042
     Dates: start: 20080830
  7. SUFENTA PRESERVATIVE FREE [Concomitant]
     Route: 042
     Dates: start: 20080830
  8. NORADRENALINE [Concomitant]
     Route: 042
     Dates: start: 20080830

REACTIONS (5)
  - ANAPHYLACTIC SHOCK [None]
  - BLOOD ALCOHOL INCREASED [None]
  - DRUG TOXICITY [None]
  - HAEMODYNAMIC INSTABILITY [None]
  - LUNG DISORDER [None]
